FAERS Safety Report 12718057 (Version 1)
Quarter: 2016Q3

REPORT INFORMATION
  Report Type: Spontaneous
  Country: FR (occurrence: FR)
  Receive Date: 20160906
  Receipt Date: 20160906
  Transmission Date: 20161109
  Serious: Yes (Hospitalization)
  Sender: FDA-Public Use
  Company Number: FR-SA-2016SA163254

PATIENT
  Age: 53 Year
  Sex: Male

DRUGS (3)
  1. RIFADINE [Suspect]
     Active Substance: RIFAMPIN
     Route: 048
     Dates: start: 20150224, end: 20150401
  2. OFLOXACIN. [Suspect]
     Active Substance: OFLOXACIN
     Route: 048
     Dates: start: 20150224, end: 20150401
  3. TARGOCID [Suspect]
     Active Substance: TEICOPLANIN
     Dosage: FORM: INTRAVENOUS INFUSION
     Route: 042
     Dates: start: 20150310, end: 20150401

REACTIONS (1)
  - Rash maculo-papular [Recovered/Resolved]

NARRATIVE: CASE EVENT DATE: 20150401
